FAERS Safety Report 9032423 (Version 2)
Quarter: 2013Q1

REPORT INFORMATION
  Report Type: Report from Study
  Country: GB (occurrence: GB)
  Receive Date: 20130125
  Receipt Date: 20130206
  Transmission Date: 20140127
  Serious: Yes (Death)
  Sender: FDA-Public Use
  Company Number: GB-ROCHE-1181363

PATIENT
  Sex: Female
  Weight: 38.1 kg

DRUGS (4)
  1. RITUXIMAB [Suspect]
     Indication: CHRONIC LYMPHOCYTIC LEUKAEMIA
     Route: 042
     Dates: start: 20121220
  2. BLINDED GS-1101 [Suspect]
     Indication: CHRONIC LYMPHOCYTIC LEUKAEMIA
     Dosage: MOST RECENT DOSE ON 23/DEC/2012
     Route: 048
     Dates: start: 20121220
  3. ALLOPURINOL [Concomitant]
     Route: 065
     Dates: start: 20121220
  4. CO-TRIMOXAZOLE [Concomitant]
     Route: 065
     Dates: start: 20121220

REACTIONS (1)
  - Sudden death [Fatal]
